FAERS Safety Report 9834822 (Version 1)
Quarter: 2014Q1

REPORT INFORMATION
  Report Type: Spontaneous
  Country: US (occurrence: US)
  Receive Date: 20140122
  Receipt Date: 20140122
  Transmission Date: 20141002
  Serious: No
  Sender: FDA-Public Use
  Company Number: US-BAUSCH-BL-2013-002648

PATIENT
  Age: 64 Year
  Sex: Female
  Weight: 54.48 kg

DRUGS (5)
  1. ALAWAY (KETOTIFEN FUMARATE OPHTHALMIC SOLUTION) [Suspect]
     Indication: EYE PRURITUS
     Dosage: 1 DROP IN EACH EYE; ONCE; OPHTHALMIC
     Route: 047
     Dates: start: 20130424, end: 20130424
  2. VITAMINS NOS [Concomitant]
  3. MAGNESIUM [Concomitant]
  4. FISH OIL [Concomitant]
  5. CALCIUM [Concomitant]

REACTIONS (2)
  - Eye irritation [Recovered/Resolved]
  - Ocular hyperaemia [Recovered/Resolved]
